FAERS Safety Report 13350115 (Version 1)
Quarter: 2017Q1

REPORT INFORMATION
  Report Type: Spontaneous
  Country: US (occurrence: US)
  Receive Date: 20170317
  Receipt Date: 20170317
  Transmission Date: 20170429
  Serious: Yes (Other)
  Sender: FDA-Public Use
  Company Number: None

PATIENT
  Age: 19 Year
  Sex: Female
  Weight: 110.8 kg

DRUGS (1)
  1. CONCERTA [Suspect]
     Active Substance: METHYLPHENIDATE HYDROCHLORIDE
     Indication: ATTENTION DEFICIT/HYPERACTIVITY DISORDER
     Dosage: 36MG QAM ORALLY
     Route: 048
     Dates: start: 20170113

REACTIONS (3)
  - Therapeutic response changed [None]
  - Disturbance in attention [None]
  - Abnormal behaviour [None]

NARRATIVE: CASE EVENT DATE: 20170220
